FAERS Safety Report 15661991 (Version 1)
Quarter: 2018Q4

REPORT INFORMATION
  Report Type: Spontaneous
  Country: VN (occurrence: VN)
  Receive Date: 20181127
  Receipt Date: 20181127
  Transmission Date: 20190205
  Serious: Yes (Other)
  Sender: FDA-Public Use
  Company Number: PHHY2018VN163027

PATIENT
  Age: 18 Year
  Sex: Female

DRUGS (2)
  1. CAPECITABINE. [Suspect]
     Active Substance: CAPECITABINE
     Indication: BREAST CANCER METASTATIC
     Dosage: 900 MG/M2, BID FROM DAY 1 TO DAY 14 OF 21-DAY CYCLE
     Route: 048
  2. DOCETAXEL. [Suspect]
     Active Substance: DOCETAXEL
     Indication: BREAST CANCER METASTATIC
     Dosage: 75 MG/M2, UNK (ON DAY 1 OF 21-DAY CYCLE)
     Route: 042

REACTIONS (2)
  - Hepatic enzyme increased [Unknown]
  - Hepatotoxicity [Unknown]
